FAERS Safety Report 6609804-8 (Version None)
Quarter: 2010Q1

REPORT INFORMATION
  Report Type: 
  Country: None (occurrence: None)
  Receive Date: 20100302
  Receipt Date: 20100217
  Transmission Date: 20100710
  Serious: Yes (Hospitalization, Other)
  Sender: FDA-Public Use
  Company Number: PHHY2010JP09431

PATIENT
  Age: 85 Year
  Sex: Male

DRUGS (9)
  1. DIOVAN [Suspect]
     Indication: HYPERTENSION
     Dosage: 80 MG, QD
     Route: 048
     Dates: start: 20100119, end: 20100215
  2. ZYLORIC [Concomitant]
     Dosage: UNK
     Route: 048
  3. TAKEPRON [Concomitant]
     Dosage: UNK
     Route: 048
  4. SIGMART [Concomitant]
     Dosage: 10 MG, UNK
     Route: 048
  5. ASPIRIN [Concomitant]
     Dosage: 100 MG, UNK
     Route: 048
  6. SELBEX [Concomitant]
     Dosage: 3 DF, UNK
     Route: 048
  7. CRESTOR [Concomitant]
     Dosage: 2.5 MG, UNK
     Route: 048
  8. FRANDOL [Concomitant]
     Dosage: UNK
     Route: 062
  9. UNSPECIFIED MEDICATION [Concomitant]
     Dosage: 0.2 MG, UNK
     Route: 048

REACTIONS (2)
  - CARDIAC FAILURE CONGESTIVE [None]
  - DYSPNOEA [None]
